FAERS Safety Report 6984503-1 (Version None)
Quarter: 2010Q3

REPORT INFORMATION
  Report Type: 
  Country: None (occurrence: None)
  Receive Date: 20100915
  Receipt Date: 20100909
  Transmission Date: 20110219
  Serious: Yes (Death, Hospitalization)
  Sender: FDA-Public Use
  Company Number: US-CELGENEUS-163-21880-10082592

PATIENT
  Sex: Female

DRUGS (7)
  1. REVLIMID [Suspect]
     Indication: MYELODYSPLASTIC SYNDROME
     Route: 048
     Dates: start: 20100810, end: 20100801
  2. DIGOXIN [Concomitant]
     Indication: CARDIOMYOPATHY
     Route: 065
  3. BENICAR [Concomitant]
     Indication: CARDIOMYOPATHY
     Route: 065
  4. TRAZODONE HCL [Concomitant]
     Indication: PRODUCT USED FOR UNKNOWN INDICATION
     Route: 065
  5. SYNTHROID [Concomitant]
     Indication: PRODUCT USED FOR UNKNOWN INDICATION
     Route: 065
  6. WARFARIN SODIUM [Concomitant]
     Indication: CARDIOMYOPATHY
     Route: 065
  7. WARFARIN SODIUM [Concomitant]
     Route: 065

REACTIONS (1)
  - NEOPLASM PROGRESSION [None]
